FAERS Safety Report 5123519-7 (Version None)
Quarter: 2006Q4

REPORT INFORMATION
  Report Type: 
  Country: None (occurrence: None)
  Receive Date: 20061010
  Receipt Date: 20060928
  Transmission Date: 20070319
  Serious: Yes (Other)
  Sender: FDA-Public Use
  Company Number: US-JNJFOC-20060906750

PATIENT
  Age: 6 Decade
  Sex: Male

DRUGS (3)
  1. REMICADE [Suspect]
     Dosage: 3 INFUSIONS ON UNSPECIFIED DATES IN 2006.
     Route: 042
  2. REMICADE [Suspect]
     Indication: PSORIATIC ARTHROPATHY
     Route: 042
  3. PUVA [Suspect]
     Indication: PSORIATIC ARTHROPATHY

REACTIONS (1)
  - SQUAMOUS CELL CARCINOMA OF SKIN [None]
